FAERS Safety Report 6157361-5 (Version None)
Quarter: 2009Q2

REPORT INFORMATION
  Report Type: 
  Country: None (occurrence: None)
  Receive Date: 20090413
  Receipt Date: 20090402
  Transmission Date: 20091009
  Serious: Yes (Death)
  Sender: FDA-Public Use
  Company Number: 2009VX000557

PATIENT
  Age: 82 Year
  Sex: Female

DRUGS (4)
  1. FLUCYTOSINE (FLUCYTOSINE) [Suspect]
     Indication: MENINGITIS CRYPTOCOCCAL
  2. AMPHOTERICIN B [Suspect]
     Indication: MENINGITIS CRYPTOCOCCAL
  3. FLUCONAZOLE [Suspect]
     Indication: MENINGITIS CRYPTOCOCCAL
  4. CORTICOSTEROIDS [Concomitant]

REACTIONS (2)
  - CONDITION AGGRAVATED [None]
  - UNEVALUABLE EVENT [None]
